FAERS Safety Report 5583871-5 (Version None)
Quarter: 2008Q1

REPORT INFORMATION
  Report Type: 
  Country: None (occurrence: None)
  Receive Date: 20080108
  Receipt Date: 20071229
  Transmission Date: 20080703
  Serious: Yes (Hospitalization)
  Sender: FDA-Public Use
  Company Number: MX-JNJFOC-20080100208

PATIENT
  Sex: Female
  Weight: 99 kg

DRUGS (1)
  1. RISPERIDONE LAI [Suspect]
     Indication: BIPOLAR I DISORDER
     Route: 030

REACTIONS (1)
  - AGGRESSION [None]
